FAERS Safety Report 17839926 (Version 1)
Quarter: 2020Q2

REPORT INFORMATION
  Report Type: Report from Study
  Country: DE (occurrence: DE)
  Receive Date: 20200529
  Receipt Date: 20200529
  Transmission Date: 20200714
  Serious: Yes (Death)
  Sender: FDA-Public Use
  Company Number: DE-MYLANLABS-2020M1052021

PATIENT
  Sex: Female

DRUGS (3)
  1. GEMCITABINE. [Suspect]
     Active Substance: GEMCITABINE
     Indication: OVARIAN CANCER RECURRENT
     Dosage: 1000MG/M2, Q3WON DAYS 1 AND 8, REPEATED FOR SIX CYCLES
     Route: 042
  2. BEVACIZUMAB. [Suspect]
     Active Substance: BEVACIZUMAB
     Indication: OVARIAN CANCER RECURRENT
     Dosage: 15MG/KG, Q3WON DAY 1SIX CYCLESSUBSEQUENTLY IV SINGLE-AGENT MAINTENANCE BEVACIZUMAB AT THE SAME DOSE
     Route: 042
  3. CARBOPLATIN. [Suspect]
     Active Substance: CARBOPLATIN
     Indication: OVARIAN CANCER RECURRENT
     Dosage: UNK UNK, Q3W,CARBOPLATIN AREA UNDER THE CONCENTRATION CURVE (AUC) 4 ON DAY 1, ALL ADMINISTERED
     Route: 042

REACTIONS (1)
  - Haemorrhage intracranial [Fatal]
